FAERS Safety Report 8305188-8 (Version None)
Quarter: 2012Q2

REPORT INFORMATION
  Report Type: 
  Country: None (occurrence: None)
  Receive Date: 20120411
  Receipt Date: 20120328
  Transmission Date: 20120825
  Serious: Yes (Other)
  Sender: FDA-Public Use
  Company Number: 2012031823

PATIENT
  Age: 71 Year
  Sex: Female
  Weight: 78.4723 kg

DRUGS (21)
  1. FOLIC ACID [Concomitant]
  2. OXYGEN (OXYGEN) [Concomitant]
  3. LOSARTAN POTASSIUM [Concomitant]
  4. LORAZEPAM [Concomitant]
  5. MULTIVITAMIN (DAILY MULTIVITAMIN) [Concomitant]
  6. ISOSORBIDE (ISOSORBIDE) [Concomitant]
  7. HIZENTRA [Suspect]
     Indication: IMMUNODEFICIENCY COMMON VARIABLE
     Dosage: ( 8 G 1X/WEEK, IN 2-3 SITES OVER 1-2 HOURS SUBCUTANEOUS)
     Route: 058
     Dates: start: 20120217
  8. CARDIZEM [Concomitant]
  9. LASIX [Concomitant]
  10. NEURONTIN [Concomitant]
  11. MUPIROCIN [Concomitant]
  12. ISOSORBIDE (ISOSORBIDE) [Concomitant]
  13. ACETAMINOPHEN [Concomitant]
  14. DUONEB [Concomitant]
  15. SINGULAIR [Concomitant]
  16. PULMICORT [Concomitant]
  17. CALCIUM WITH VITAMIN D (CALCIUM WITH VITAMIN D) [Concomitant]
  18. LEVEMIR [Concomitant]
  19. HYDROXYZINE [Concomitant]
  20. LEVOTHYROXINE SODIUM [Concomitant]
  21. PROTONIX [Concomitant]

REACTIONS (1)
  - RESPIRATORY TRACT INFECTION [None]
